FAERS Safety Report 5025578-9 (Version None)
Quarter: 2006Q2

REPORT INFORMATION
  Report Type: 
  Country: None (occurrence: None)
  Receive Date: 20060426
  Receipt Date: 20060105
  Transmission Date: 20061013
  Serious: Yes (Other)
  Sender: FDA-Public Use
  Company Number: 2006003150

PATIENT
  Age: 30 Year
  Sex: Female

DRUGS (3)
  1. LYRICA [Suspect]
     Indication: DIABETIC NEUROPATHY
     Dosage: 150 MG (1 IN 1 D)
     Dates: start: 20051201
  2. NEURONTIN [Suspect]
     Indication: DIABETIC NEUROPATHY
  3. ORAL CONTRACEPTIVE NOS (ORAL CONTRACEPTIVE NOS) [Concomitant]

REACTIONS (6)
  - CONDITION AGGRAVATED [None]
  - DEPRESSION [None]
  - DIABETES MELLITUS [None]
  - DRUG INEFFECTIVE [None]
  - SOMNOLENCE [None]
  - SUICIDAL IDEATION [None]
